FAERS Safety Report 9390878 (Version 1)
Quarter: 2013Q3

REPORT INFORMATION
  Report Type: Report from Study
  Country: DE (occurrence: DE)
  Receive Date: 20130709
  Receipt Date: 20130709
  Transmission Date: 20140515
  Serious: Yes (Hospitalization)
  Sender: FDA-Public Use
  Company Number: DE-ROCHE-1246422

PATIENT
  Sex: Female
  Weight: 64 kg

DRUGS (4)
  1. RANIBIZUMAB [Suspect]
     Indication: VISUAL IMPAIRMENT
     Route: 050
     Dates: start: 20121015, end: 20121210
  2. RANIBIZUMAB [Suspect]
     Indication: DIABETIC RETINAL OEDEMA
  3. NOVORAPID [Concomitant]
  4. LEVEMIR [Concomitant]

REACTIONS (1)
  - Osteoarthritis [Unknown]
